FAERS Safety Report 8710311 (Version 2)
Quarter: 2013Q4

REPORT INFORMATION
  Report Type: Spontaneous
  Country: US (occurrence: US)
  Receive Date: 20120807
  Receipt Date: 20131108
  Transmission Date: 20140711
  Serious: Yes (Other)
  Sender: FDA-Public Use
  Company Number: US-009507513-2012SP026642

PATIENT
  Age: 55 Year
  Sex: Male
  Weight: 61.24 kg

DRUGS (3)
  1. REBETOL [Suspect]
     Dosage: 600 MG IN MORNING AND 400 MG IN EVENING
     Route: 048
  2. VICTRELIS [Suspect]
     Dosage: 800 MG, TID
     Route: 048
  3. PEGASYS [Suspect]
     Dosage: 180 MG, QW
     Route: 058

REACTIONS (5)
  - White blood cell count decreased [Unknown]
  - Haematocrit decreased [Unknown]
  - Neutrophil count decreased [Unknown]
  - Haemoglobin decreased [Unknown]
  - Anaemia [Unknown]
